FAERS Safety Report 15491833 (Version 1)
Quarter: 2018Q4

REPORT INFORMATION
  Report Type: Spontaneous
  Country: US (occurrence: US)
  Receive Date: 20181012
  Receipt Date: 20181012
  Transmission Date: 20190205
  Serious: Yes (Disabling, Other)
  Sender: FDA-Public Use
  Company Number: US-ACCORD-073351

PATIENT
  Age: 51 Year
  Sex: Male

DRUGS (2)
  1. CISPLATIN. [Suspect]
     Active Substance: CISPLATIN
     Indication: NEUROENDOCRINE CARCINOMA
     Dosage: ON DAY 1 OF A 21-DAY CYCLE
     Route: 042
  2. ETOPOSIDE. [Suspect]
     Active Substance: ETOPOSIDE
     Indication: NEUROENDOCRINE CARCINOMA
     Dosage: ON DAYS 1-3 OF A 21- DAY CYCLE
     Route: 042

REACTIONS (3)
  - Off label use [Unknown]
  - Tinnitus [Unknown]
  - Hypoacusis [Unknown]
